FAERS Safety Report 23949543 (Version 1)
Quarter: 2024Q2

REPORT INFORMATION
  Report Type: Report from Study
  Country: BR (occurrence: BR)
  Receive Date: 20240607
  Receipt Date: 20240607
  Transmission Date: 20240716
  Serious: Yes (Hospitalization)
  Sender: FDA-Public Use
  Company Number: BR-Merck Healthcare KGaA-9397248

PATIENT
  Age: 19 Year
  Sex: Male

DRUGS (1)
  1. MAVENCLAD [Suspect]
     Active Substance: CLADRIBINE
     Indication: Multiple sclerosis
     Dosage: YEAR ONE MONTH ONE THERAPY: TWO TABLETS ON DAY DAY 1 TO 3 AND ONE TABLET ON DAY 4 AND 5.
     Route: 048
     Dates: start: 20230314, end: 20230318

REACTIONS (7)
  - Pancreatitis [Recovered/Resolved]
  - Dengue fever [Recovered/Resolved]
  - Blood potassium decreased [Unknown]
  - Hepatic enzyme decreased [Unknown]
  - Aspartate aminotransferase decreased [Unknown]
  - Alanine aminotransferase decreased [Unknown]
  - Lymphocyte count decreased [Not Recovered/Not Resolved]

NARRATIVE: CASE EVENT DATE: 20230401
